FAERS Safety Report 20988799 (Version 1)
Quarter: 2022Q2

REPORT INFORMATION
  Report Type: Spontaneous
  Country: US (occurrence: None)
  Receive Date: 20220619
  Receipt Date: 20220619
  Transmission Date: 20220721
  Serious: Yes (Hospitalization)
  Sender: FDA-Public Use
  Company Number: None

PATIENT
  Age: 82 Year
  Sex: Female
  Weight: 44.1 kg

DRUGS (2)
  1. DUOPA [Suspect]
     Active Substance: CARBIDOPA\LEVODOPA
     Indication: Parkinson^s disease
  2. DEVICE [Suspect]
     Active Substance: DEVICE

REACTIONS (3)
  - Device dislocation [None]
  - Device failure [None]
  - Treatment delayed [None]

NARRATIVE: CASE EVENT DATE: 20220618
